FAERS Safety Report 7982729 (Version 2)
Quarter: 2012Q4

REPORT INFORMATION
  Report Type: 
  Country: CA (occurrence: CA)
  Receive Date: 20110609
  Receipt Date: 20121009
  Transmission Date: 20130627
  Serious: Yes (Hospitalization)
  Sender: FDA-Public Use
  Company Number: PHMT2006CA01500

PATIENT
  Age: 67 Year
  Sex: Female

DRUGS (2)
  1. SANDOSTATIN LAR [Suspect]
     Indication: CARCINOID SYNDROME
     Dosage: 40 mg, UNK
     Route: 030
     Dates: start: 20040101, end: 20060810
  2. SANDOSTATIN LAR [Suspect]
     Dosage: 40 mg, UNK
     Route: 030
     Dates: start: 20061005

REACTIONS (3)
  - Device related infection [Recovered/Resolved]
  - Pyrexia [Unknown]
  - Chills [Unknown]
